FAERS Safety Report 6308587-9 (Version None)
Quarter: 2009Q3

REPORT INFORMATION
  Report Type: 
  Country: None (occurrence: None)
  Receive Date: 20090813
  Receipt Date: 20090807
  Transmission Date: 20100115
  Serious: Yes (Hospitalization)
  Sender: FDA-Public Use
  Company Number: PHHO2007FR18695

PATIENT
  Sex: Male
  Weight: 52 kg

DRUGS (3)
  1. RAD [Suspect]
     Indication: CHEMOTHERAPY MULTIPLE AGENTS SYSTEMIC
     Dosage: OPEN LABEL
     Route: 048
     Dates: start: 20070924
  2. RAD [Suspect]
     Indication: RENAL CANCER METASTATIC
  3. PLACEBO COMP-PLA+ [Suspect]
     Indication: RENAL CANCER METASTATIC
     Dosage: PLACEBO
     Route: 048
     Dates: start: 20070806

REACTIONS (1)
  - RESPIRATORY DISTRESS [None]
